FAERS Safety Report 16555455 (Version 1)
Quarter: 2019Q3

REPORT INFORMATION
  Report Type: Spontaneous
  Country: AU (occurrence: AU)
  Receive Date: 20190710
  Receipt Date: 20190710
  Transmission Date: 20191004
  Serious: Yes (Other)
  Sender: FDA-Public Use
  Company Number: AU-LEO PHARMA-322816

PATIENT
  Age: 3 Month
  Sex: Female

DRUGS (6)
  1. MOMETASONE FUROATE. [Suspect]
     Active Substance: MOMETASONE FUROATE
     Indication: DERMATITIS ATOPIC
     Dosage: QD (15G PER WEEK, OFTEN UNDER WET DRESSING)
  2. DAIVOBET [Suspect]
     Active Substance: BETAMETHASONE DIPROPIONATE\CALCIPOTRIENE
     Indication: DERMATITIS ATOPIC
     Dosage: UNK
  3. ADVANTAN [Suspect]
     Active Substance: METHYLPREDNISOLONE ACEPONATE
     Indication: DERMATITIS ATOPIC
     Dosage: QD (15G PER WEEK, OFTEN UNDER WET DRESSING)
  4. PIMECROLIMUS. [Concomitant]
     Active Substance: PIMECROLIMUS
     Indication: DERMATITIS ATOPIC
     Dosage: UNK
  5. MOMETASONE FUROATE. [Suspect]
     Active Substance: MOMETASONE FUROATE
     Indication: DERMATITIS ATOPIC
     Dosage: TID, UNDER WET DRESSING (DURING ADMISSION)
  6. HYDROCORTISONE. [Suspect]
     Active Substance: HYDROCORTISONE
     Indication: DERMATITIS ATOPIC
     Dosage: UNK

REACTIONS (6)
  - Rhinitis allergic [Unknown]
  - Asthma [Unknown]
  - Steroid withdrawal syndrome [Recovered/Resolved]
  - Food allergy [Unknown]
  - Product administered to patient of inappropriate age [Unknown]
  - Urinary tract infection [Unknown]
